FAERS Safety Report 19066346 (Version 1)
Quarter: 2021Q1

REPORT INFORMATION
  Report Type: Spontaneous
  Country: ES (occurrence: ES)
  Receive Date: 20210328
  Receipt Date: 20210328
  Transmission Date: 20210420
  Serious: Yes (Hospitalization)
  Sender: FDA-Public Use
  Company Number: ES-TEVA-2021-ES-1893965

PATIENT
  Age: 71 Year
  Sex: Female
  Weight: 83 kg

DRUGS (7)
  1. ENALAPRIL MALEATO (2142MA) [Suspect]
     Active Substance: ENALAPRIL MALEATE
     Dosage: 5MG
     Route: 048
     Dates: start: 20210216, end: 20210225
  2. ANAKINRA (2699A) [Suspect]
     Active Substance: ANAKINRA
     Indication: IMMUNE EFFECTOR CELL-ASSOCIATED NEUROTOXICITY SYNDROME
     Dosage: 600MG
     Route: 058
     Dates: start: 20210221, end: 20210223
  3. AMLODIPINO (2503A) [Suspect]
     Active Substance: AMLODIPINE BESYLATE
     Dosage: 5MG
     Route: 048
     Dates: start: 20210213, end: 20210225
  4. PARACETAMOL (12A) [Suspect]
     Active Substance: ACETAMINOPHEN
     Indication: ANALGESIC THERAPY
     Dosage: 1GM
     Route: 042
     Dates: start: 20210123, end: 20210224
  5. TOCILIZUMAB (8289A) [Suspect]
     Active Substance: TOCILIZUMAB
     Indication: CYTOKINE RELEASE SYNDROME
     Dosage: 652MG
     Route: 042
     Dates: start: 20210209, end: 20210209
  6. SULFAMETOXAZOL + TRIMETOPRIMA [Suspect]
     Active Substance: SULFAMETHOXAZOLE\TRIMETHOPRIM
     Indication: PROPHYLAXIS OF ABORTION
     Dosage: 2DF
     Route: 048
     Dates: start: 20210201, end: 20210225
  7. MICAFUNGINA SODICA (8263SO) [Suspect]
     Active Substance: MICAFUNGIN
     Indication: PROPHYLAXIS
     Dosage: 100MG
     Route: 042
     Dates: start: 20210211, end: 20210225

REACTIONS (1)
  - Mixed liver injury [Recovering/Resolving]

NARRATIVE: CASE EVENT DATE: 20210224
